FAERS Safety Report 13888674 (Version 10)
Quarter: 2019Q4

REPORT INFORMATION
  Report Type: Spontaneous
  Country: DE (occurrence: DE)
  Receive Date: 20170822
  Receipt Date: 20191106
  Transmission Date: 20200122
  Serious: Yes (Life-Threatening, Hospitalization, Other)
  Sender: FDA-Public Use
  Company Number: DE-AUROBINDO-AUR-APL-2017-39145

PATIENT
  Age: 25 Year
  Sex: Female
  Weight: 65 kg

DRUGS (6)
  1. AMITRIPTYLINE [Suspect]
     Active Substance: AMITRIPTYLINE
     Indication: BORDERLINE PERSONALITY DISORDER
     Dosage: 5.5 GRAM (POTENTIALLY LETHAL DOSE, 85 MG/KG BODYWEIGHT)
     Route: 048
  2. QUETIAPINE FILM-COATED TABLET [Suspect]
     Active Substance: QUETIAPINE
     Indication: DEPRESSION
     Dosage: 10 GRAM (POTENTIALLY LETHAL DOSE, 150 MG/KG BODYWEIGHT)
     Route: 048
  3. AMITRIPTYLINE [Suspect]
     Active Substance: AMITRIPTYLINE
     Dosage: UNK
     Route: 048
  4. QUETIAPINE FILM-COATED TABLET [Suspect]
     Active Substance: QUETIAPINE
     Indication: BORDERLINE PERSONALITY DISORDER
     Dosage: 150 MILLIGRAM/KILOGRAM ((POTENTIALLY LETHAL DOSE)
     Route: 065
  5. ALCOHOL. [Suspect]
     Active Substance: ALCOHOL
     Indication: PRODUCT USED FOR UNKNOWN INDICATION
     Dosage: UNK
     Route: 048
  6. AMITRIPTYLINE [Suspect]
     Active Substance: AMITRIPTYLINE
     Indication: DEPRESSION
     Dosage: 85 MILLIGRAM/KILOGRAM (POTENTIALLY LETHAL DOSE)
     Route: 048

REACTIONS (22)
  - Anticholinergic syndrome [Recovered/Resolved]
  - Ventricular tachycardia [Recovered/Resolved]
  - Coma [Recovered/Resolved]
  - Toxicity to various agents [Recovered/Resolved]
  - Blood lactic acid increased [Recovered/Resolved]
  - Sinus tachycardia [Recovered/Resolved]
  - Loss of consciousness [Recovered/Resolved]
  - Cardiovascular insufficiency [Recovered/Resolved]
  - Arrhythmia [Recovered/Resolved]
  - Bradypnoea [Recovered/Resolved]
  - Haemodynamic instability [Recovered/Resolved]
  - Pyrexia [Recovered/Resolved]
  - Myoclonus [Recovered/Resolved]
  - Shock [Recovered/Resolved]
  - Cardiotoxicity [Recovering/Resolving]
  - Suicidal ideation [Recovered/Resolved]
  - Alcohol poisoning [Recovering/Resolving]
  - Cardiogenic shock [Recovered/Resolved]
  - Overdose [Recovering/Resolving]
  - Electrocardiogram QT prolonged [Recovering/Resolving]
  - Hyperthermia [Recovered/Resolved]
  - Suicide attempt [Unknown]
